FAERS Safety Report 7594349-1 (Version None)
Quarter: 2011Q3

REPORT INFORMATION
  Report Type: 
  Country: None (occurrence: None)
  Receive Date: 20110707
  Receipt Date: 20110629
  Transmission Date: 20111222
  Serious: Yes (Hospitalization)
  Sender: FDA-Public Use
  Company Number: US-BIOGENIDEC-2010BI039385

PATIENT
  Age: 47 Year
  Sex: Female

DRUGS (2)
  1. TYSABRI [Suspect]
     Route: 042
     Dates: start: 20110209
  2. TYSABRI [Suspect]
     Indication: MULTIPLE SCLEROSIS
     Route: 042
     Dates: start: 20090904, end: 20100215

REACTIONS (10)
  - ASTHENIA [None]
  - SCOLIOSIS [None]
  - INTERVERTEBRAL DISC DISORDER [None]
  - TREMOR [None]
  - COGNITIVE DISORDER [None]
  - PAIN [None]
  - MULTIPLE SCLEROSIS RELAPSE [None]
  - HYPOAESTHESIA [None]
  - MUSCULAR WEAKNESS [None]
  - ABASIA [None]
